FAERS Safety Report 4439426-9 (Version None)
Quarter: 2004Q3

REPORT INFORMATION
  Report Type: 
  Country: None (occurrence: None)
  Receive Date: 20040728
  Receipt Date: 20040318
  Transmission Date: 20050211
  Serious: No
  Sender: FDA-Public Use
  Company Number: USA040362298

PATIENT
  Age: 14 Year
  Sex: Male
  Weight: 47 kg

DRUGS (1)
  1. STRATTERA [Suspect]
     Dosage: 40 MG DAY

REACTIONS (3)
  - MYDRIASIS [None]
  - SOMNOLENCE [None]
  - SPEECH DISORDER [None]
